FAERS Safety Report 18956074 (Version 1)
Quarter: 2021Q1

REPORT INFORMATION
  Report Type: Other
  Country: IT (occurrence: IT)
  Receive Date: 20210301
  Receipt Date: 20210301
  Transmission Date: 20210420
  Serious: Yes (Death, Hospitalization, Other)
  Sender: FDA-Public Use
  Company Number: IT-INVATECH-000051

PATIENT
  Age: 64 Year
  Sex: Male

DRUGS (1)
  1. SODIUM POLYSTYRENE SULFONATE. [Suspect]
     Active Substance: SODIUM POLYSTYRENE SULFONATE
     Indication: HYPERKALAEMIA
     Dosage: 30 G/DAY BY MOUTH FOR 2 DAYS EACH WEEK DURING THE LONG INTERDIALYTIC INTERVAL
     Route: 048

REACTIONS (7)
  - Arrhythmia [Fatal]
  - Colitis ischaemic [Unknown]
  - Gastrointestinal toxicity [Unknown]
  - Intestinal infarction [Fatal]
  - Rectal haemorrhage [Unknown]
  - Haemoglobin decreased [Unknown]
  - Contraindicated product prescribed [Unknown]
